FAERS Safety Report 7743862 (Version 5)
Quarter: 2019Q3

REPORT INFORMATION
  Report Type: Spontaneous
  Country: US (occurrence: US)
  Receive Date: 20101230
  Receipt Date: 20190709
  Transmission Date: 20191005
  Serious: Yes (Life-Threatening, Hospitalization, Other)
  Sender: FDA-Public Use
  Company Number: US-PFIZER INC-K201001527

PATIENT
  Age: 20 Year
  Sex: Male

DRUGS (5)
  1. VIBRAMYCIN [Suspect]
     Active Substance: DOXYCYCLINE
     Dosage: UNK
  2. SEPTRA [Interacting]
     Active Substance: SULFAMETHOXAZOLE\TRIMETHOPRIM
     Indication: TENOSYNOVITIS
     Dosage: 1 DF, UNK
     Route: 048
  3. ROCEPHIN [Suspect]
     Active Substance: CEFTRIAXONE SODIUM
     Indication: TENOSYNOVITIS
     Dosage: 1 DF, SINGLE(ONCE)
  4. VANCOCIN [Suspect]
     Active Substance: VANCOMYCIN HYDROCHLORIDE
     Indication: TENOSYNOVITIS
     Dosage: 1 DF, SINGLE(ONCE PRE-OPERATION DOSE)
  5. ROCEPHIN [Suspect]
     Active Substance: CEFTRIAXONE SODIUM
     Dosage: 1 DF, UNK

REACTIONS (4)
  - Drug interaction [Recovered/Resolved]
  - Stevens-Johnson syndrome [Recovered/Resolved]
  - Drug reaction with eosinophilia and systemic symptoms [Recovered/Resolved]
  - Human herpesvirus 6 infection [Recovered/Resolved]
